FAERS Safety Report 5703392-6 (Version None)
Quarter: 2008Q2

REPORT INFORMATION
  Report Type: 
  Country: None (occurrence: None)
  Receive Date: 20080411
  Receipt Date: 20080401
  Transmission Date: 20081010
  Serious: Yes (Hospitalization, Other)
  Sender: FDA-Public Use
  Company Number: US-PFIZER INC-2008028911

PATIENT
  Sex: Male

DRUGS (7)
  1. LIPITOR [Suspect]
     Indication: BLOOD CHOLESTEROL INCREASED
  2. ATENOLOL [Concomitant]
     Indication: HYPERTENSION
     Dosage: DAILY DOSE:50MG-FREQ:DAILY
  3. PRILOSEC [Concomitant]
     Dosage: DAILY DOSE:20MG-FREQ:DAILY
  4. STARLIX [Concomitant]
     Indication: DIABETES MELLITUS
  5. ACETYLSALICYLIC ACID SRT [Concomitant]
  6. NEURONTIN [Concomitant]
  7. MOBIC [Concomitant]
     Indication: ANTIINFLAMMATORY THERAPY

REACTIONS (17)
  - ABDOMINAL DISCOMFORT [None]
  - ARTERIAL OCCLUSIVE DISEASE [None]
  - ARTHRALGIA [None]
  - ASTHENIA [None]
  - ATRIAL FIBRILLATION [None]
  - CARDIAC DISORDER [None]
  - DEPRESSION [None]
  - DISTURBANCE IN ATTENTION [None]
  - DIZZINESS [None]
  - FATIGUE [None]
  - HEADACHE [None]
  - INSOMNIA [None]
  - MEMORY IMPAIRMENT [None]
  - MUSCULOSKELETAL PAIN [None]
  - MYALGIA [None]
  - SYNCOPE VASOVAGAL [None]
  - WEIGHT INCREASED [None]
